FAERS Safety Report 9771871 (Version 5)
Quarter: 2014Q3

REPORT INFORMATION
  Report Type: Spontaneous
  Country: US (occurrence: None)
  Receive Date: 20130926
  Receipt Date: 20140827
  Transmission Date: 20150326
  Serious: Yes (Hospitalization)
  Sender: FDA-Public Use
  Company Number: US-000797

PATIENT
  Age: 75 Year
  Sex: Female

DRUGS (23)
  1. LOSARTAN [Concomitant]
     Active Substance: LOSARTAN
  2. ASPIRIN. [Concomitant]
     Active Substance: ASPIRIN
  3. GATTEX [Suspect]
     Active Substance: TEDUGLUTIDE\WATER
     Indication: SHORT-BOWEL SYNDROME
     Route: 058
     Dates: start: 2013
  4. SOLUTIONS FOR PARENTERAL NUTRITION [Concomitant]
     Active Substance: AMINO ACIDS\DEXTROSE\ELECTROLYTES NOS
  5. CELEBREX [Concomitant]
     Active Substance: CELECOXIB
  6. TYLENOL WITH CODEINE [Concomitant]
     Active Substance: ACETAMINOPHEN\CODEINE PHOSPHATE
  7. CLONIDINE. [Concomitant]
     Active Substance: CLONIDINE
  8. BENTYL [Concomitant]
     Active Substance: DICYCLOMINE HYDROCHLORIDE
  9. DILANTIN [Concomitant]
     Active Substance: PHENYTOIN
  10. AMLODIPINE [Concomitant]
     Active Substance: AMLODIPINE BESYLATE
  11. LOMOTIL [Concomitant]
     Active Substance: ATROPINE SULFATE\DIPHENOXYLATE HYDROCHLORIDE
  12. BUTALBITAL [Concomitant]
     Active Substance: BUTALBITAL
  13. IMITREX [Concomitant]
     Active Substance: SUMATRIPTAN\SUMATRIPTAN SUCCINATE
  14. IMODIUM [Concomitant]
     Active Substance: LOPERAMIDE HYDROCHLORIDE
  15. LASIX [Concomitant]
     Active Substance: FUROSEMIDE
  16. ZOFRAN /00955301/ [Concomitant]
     Active Substance: ONDANSETRON HYDROCHLORIDE
  17. CETIRIZINE [Concomitant]
     Active Substance: CETIRIZINE HYDROCHLORIDE
  18. PREVACID [Concomitant]
     Active Substance: LANSOPRAZOLE
  19. METOPROLOL [Concomitant]
     Active Substance: METOPROLOL
  20. HYDROCHLOROTHIAZIDE. [Concomitant]
     Active Substance: HYDROCHLOROTHIAZIDE
  21. POTASSIUM [Concomitant]
     Active Substance: POTASSIUM
  22. BABY ASPIRIN [Concomitant]
     Active Substance: ASPIRIN
  23. VITAMIN D [Concomitant]
     Active Substance: CHOLECALCIFEROL

REACTIONS (10)
  - Thrombosis [None]
  - Joint swelling [None]
  - Diarrhoea [None]
  - Faeces discoloured [None]
  - Cardiac failure [None]
  - Venous thrombosis [None]
  - Peripheral swelling [None]
  - Mitral valve incompetence [None]
  - Pain in extremity [None]
  - Oedema peripheral [None]

NARRATIVE: CASE EVENT DATE: 201309
